FAERS Safety Report 24118058 (Version 1)
Quarter: 2024Q3

REPORT INFORMATION
  Report Type: Spontaneous
  Country: US (occurrence: US)
  Receive Date: 20240722
  Receipt Date: 20240722
  Transmission Date: 20241017
  Serious: Yes (Life-Threatening, Hospitalization, Other)
  Sender: Unknown Manufacturer
  Company Number: US-862174955-ML2024-03981

PATIENT
  Age: 65 Year
  Sex: Female

DRUGS (2)
  1. SUCCINYLCHOLINE [Suspect]
     Active Substance: SUCCINYLCHOLINE
     Indication: Induction of anaesthesia
  2. ETOMIDATE [Concomitant]
     Active Substance: ETOMIDATE
     Indication: Induction of anaesthesia

REACTIONS (7)
  - Shock [Unknown]
  - Multiple organ dysfunction syndrome [Unknown]
  - Blood lactic acid increased [Unknown]
  - Blood creatine phosphokinase increased [Recovered/Resolved]
  - Myoglobinuria [Recovered/Resolved]
  - Hyperthermia malignant [Not Recovered/Not Resolved]
  - Condition aggravated [Not Recovered/Not Resolved]
